FAERS Safety Report 8005608-2 (Version None)
Quarter: 2011Q4

REPORT INFORMATION
  Report Type: 
  Country: None (occurrence: None)
  Receive Date: 20111223
  Receipt Date: 20111220
  Transmission Date: 20120403
  Serious: Yes (Hospitalization)
  Sender: FDA-Public Use
  Company Number: US-ROXANE LABORATORIES, INC.-2011-RO-01846RO

PATIENT
  Sex: Male
  Weight: 120 kg

DRUGS (3)
  1. LENALIDOMIDE [Suspect]
  2. CEP-18770 [Suspect]
     Indication: MULTIPLE MYELOMA
     Route: 042
     Dates: start: 20111007, end: 20111118
  3. DEXAMETHASONE [Suspect]
     Dates: start: 20111007

REACTIONS (1)
  - RESPIRATORY SYNCYTIAL VIRUS INFECTION [None]
